FAERS Safety Report 6585546-2 (Version None)
Quarter: 2010Q1

REPORT INFORMATION
  Report Type: 
  Country: None (occurrence: None)
  Receive Date: 20100201
  Receipt Date: 20090113
  Transmission Date: 20100710
  Serious: Yes (Hospitalization)
  Sender: FDA-Public Use
  Company Number: 8041169

PATIENT
  Age: 5 Year
  Sex: Female

DRUGS (1)
  1. KEPPRA [Suspect]
     Dosage: 60 MG/KG, DAILY ; 68 MG/KG, DOSE FREQ.: DAILY

REACTIONS (1)
  - CONVULSION [None]
